FAERS Safety Report 15185902 (Version 1)
Quarter: 2018Q3

REPORT INFORMATION
  Report Type: Spontaneous
  Country: US (occurrence: US)
  Receive Date: 20180723
  Receipt Date: 20180723
  Transmission Date: 20181010
  Serious: No
  Sender: FDA-Public Use
  Company Number: US-EXELIXIS-CABO-18012407

PATIENT
  Age: 64 Year
  Sex: Male

DRUGS (3)
  1. LEVOTHYROXINE. [Concomitant]
     Active Substance: LEVOTHYROXINE
  2. OMEPRAZOLE. [Concomitant]
     Active Substance: OMEPRAZOLE
  3. CABOMETYX [Suspect]
     Active Substance: CABOZANTINIB S-MALATE
     Indication: RENAL CELL CARCINOMA
     Dosage: 60 MG, QD
     Route: 048
     Dates: start: 2017

REACTIONS (15)
  - Hallucination, auditory [Unknown]
  - Flatulence [Unknown]
  - Blood thyroid stimulating hormone increased [Unknown]
  - Dyspepsia [Unknown]
  - Feeling abnormal [Unknown]
  - Joint swelling [Unknown]
  - Abdominal distension [Unknown]
  - Diarrhoea [Unknown]
  - Mental impairment [Unknown]
  - Weight increased [Unknown]
  - Dysgeusia [Unknown]
  - Faeces soft [Unknown]
  - Peripheral swelling [Unknown]
  - Weight decreased [Unknown]
  - Stress [Unknown]

NARRATIVE: CASE EVENT DATE: 201711
